FAERS Safety Report 26025008 (Version 1)
Quarter: 2025Q4

REPORT INFORMATION
  Report Type: Spontaneous
  Country: EU (occurrence: EU)
  Receive Date: 20251111
  Receipt Date: 20251111
  Transmission Date: 20260117
  Serious: Yes (Death, Hospitalization)
  Sender: ADVANZ PHARMA
  Company Number: None

PATIENT

DRUGS (14)
  1. PREDNISOLONE [Suspect]
     Active Substance: PREDNISOLONE
     Indication: Product used for unknown indication
     Dosage: 30 MG, QD (TABLET)
     Route: 048
     Dates: start: 20250211, end: 20250216
  2. PREDNISOLONE [Suspect]
     Active Substance: PREDNISOLONE
     Dosage: 30 MG, QD
     Route: 048
     Dates: start: 20250331, end: 20250405
  3. PREDNISOLONE [Suspect]
     Active Substance: PREDNISOLONE
     Dosage: 5 MG (72 TABLETS 5MG EACH, STARTING 40MG DAILY FOR 2 DAYS, REDUCING BY 5MG ALTERNATIVE DAYS)
     Route: 048
     Dates: start: 20250417, end: 2025
  4. PREDNISOLONE [Suspect]
     Active Substance: PREDNISOLONE
     Dosage: UNK UNK, BID (5MG TABLETS, STARTING 40MG DAILY REDUCING ON ALTERNATIVE DAYS)
     Route: 048
     Dates: start: 20250429
  5. AMOXICILLIN\CLAVULANATE POTASSIUM [Concomitant]
     Active Substance: AMOXICILLIN\CLAVULANATE POTASSIUM
     Indication: Product used for unknown indication
     Dosage: UNK (A NUMBER OF COURSES)
     Route: 042
  6. AMOXICILLIN\CLAVULANATE POTASSIUM [Concomitant]
     Active Substance: AMOXICILLIN\CLAVULANATE POTASSIUM
     Dosage: UNK
     Route: 042
     Dates: start: 20250514
  7. DOXYCYCLINE [Concomitant]
     Active Substance: DOXYCYCLINE
     Indication: Antibiotic therapy
     Dosage: UNK (A COURSE OF DOXYCYCLINE)
     Route: 065
  8. TAZOCIN [Concomitant]
     Indication: Product used for unknown indication
     Dosage: UNK
     Route: 042
     Dates: start: 20250514
  9. CEFTRIAXONE [Concomitant]
     Active Substance: CEFTRIAXONE
     Indication: Antibiotic therapy
     Dosage: UNK
     Route: 065
     Dates: start: 20250516
  10. METRONIDAZOLE (GENERIC) [Concomitant]
     Indication: Antibiotic therapy
     Dosage: UNK
     Route: 065
     Dates: start: 20250516
  11. VANCOMYCIN [Concomitant]
     Active Substance: VANCOMYCIN
     Indication: Antibiotic therapy
     Dosage: UNK
     Route: 065
     Dates: start: 20250516
  12. Septrin Forte 160mg/800mg Tablets [Concomitant]
     Indication: Pneumonia
     Dosage: UNK (HIGH DOSE)
     Route: 048
     Dates: start: 20250923
  13. EDOXABAN [Concomitant]
     Active Substance: EDOXABAN
     Indication: Product used for unknown indication
     Dosage: UNK
     Route: 048
  14. EDOXABAN [Concomitant]
     Active Substance: EDOXABAN
     Dosage: UNK
     Route: 065

REACTIONS (2)
  - Pneumonia [Fatal]
  - Pneumocystis jirovecii pneumonia [Fatal]

NARRATIVE: CASE EVENT DATE: 20250101
